FAERS Safety Report 12455973 (Version 1)
Quarter: 2016Q2

REPORT INFORMATION
  Report Type: Spontaneous
  Country: US (occurrence: US)
  Receive Date: 20160610
  Receipt Date: 20160610
  Transmission Date: 20160815
  Serious: No
  Sender: FDA-Public Use
  Company Number: GXBR2016US000495

PATIENT
  Sex: Male

DRUGS (1)
  1. AMPHETAMINE COMBINATION TABLETS [Suspect]
     Active Substance: AMPHETAMINE
     Indication: FATIGUE
     Dosage: 20 MG, QD
     Route: 048

REACTIONS (1)
  - Off label use [Unknown]
